FAERS Safety Report 13393443 (Version 1)
Quarter: 2017Q1

REPORT INFORMATION
  Report Type: Spontaneous
  Country: US (occurrence: US)
  Receive Date: 20170331
  Receipt Date: 20170331
  Transmission Date: 20170429
  Serious: Yes (Other)
  Sender: FDA-Public Use
  Company Number: US-PFIZER INC-2017139876

PATIENT
  Age: 51 Year
  Sex: Female
  Weight: 70 kg

DRUGS (5)
  1. MORPHINE [Concomitant]
     Active Substance: MORPHINE
     Indication: PAIN
     Dosage: 15MG PILL EVERY 12 HOURS
     Route: 048
  2. IBRANCE [Suspect]
     Active Substance: PALBOCICLIB
     Indication: BREAST CANCER
     Dosage: 100 MG, CYCLIC (100MG PER DAY EVERY CYCLE)
     Route: 048
     Dates: start: 201701
  3. ZOLOFT [Concomitant]
     Active Substance: SERTRALINE HYDROCHLORIDE
     Dosage: 50 MG, 1X/DAY
     Route: 048
  4. FASLODEX [Concomitant]
     Active Substance: FULVESTRANT
     Indication: BREAST CANCER
     Dosage: 500MG ONCE A MONTH
     Route: 030
     Dates: start: 201609
  5. LASIX [Concomitant]
     Active Substance: FUROSEMIDE
     Dosage: 20 MG, 2X/DAY
     Route: 048

REACTIONS (2)
  - Neutropenia [Recovered/Resolved]
  - Blood bilirubin increased [Unknown]

NARRATIVE: CASE EVENT DATE: 20170220
